FAERS Safety Report 7086715-8 (Version None)
Quarter: 2010Q4

REPORT INFORMATION
  Report Type: 
  Country: None (occurrence: None)
  Receive Date: 20101105
  Receipt Date: 20101101
  Transmission Date: 20110411
  Serious: Yes (Hospitalization)
  Sender: FDA-Public Use
  Company Number: US-ROCHE-738721

PATIENT

DRUGS (3)
  1. CAPECITABINE [Suspect]
     Indication: HEAD AND NECK CANCER
     Route: 065
  2. CAPECITABINE [Suspect]
     Route: 065
  3. DOCETAXEL [Suspect]
     Indication: HEAD AND NECK CANCER
     Route: 065

REACTIONS (1)
  - MUCOSAL INFLAMMATION [None]
